FAERS Safety Report 4772987-9 (Version None)
Quarter: 2005Q3

REPORT INFORMATION
  Report Type: 
  Country: None (occurrence: None)
  Receive Date: 20050919
  Receipt Date: 20050915
  Transmission Date: 20060218
  Serious: Yes (Death, Hospitalization)
  Sender: FDA-Public Use
  Company Number: PHRM2005FR02455

PATIENT
  Age: 51 Year
  Sex: Male
  Weight: 80 kg

DRUGS (5)
  1. DOLIPRANE [Suspect]
     Indication: CHEST PAIN
     Dosage: UNK, UNK
     Route: 048
     Dates: start: 20040722
  2. TAREG [Suspect]
     Route: 048
     Dates: end: 20040724
  3. LORAZEPAM [Suspect]
     Route: 048
     Dates: end: 20040724
  4. AMOXICILLIN [Suspect]
     Indication: LUNG DISORDER
     Route: 048
     Dates: start: 20040722, end: 20040724
  5. BI-PROFENID [Suspect]
     Indication: CHEST PAIN
     Route: 048
     Dates: start: 20040722, end: 20040724

REACTIONS (9)
  - ANURIA [None]
  - COUGH [None]
  - LEUKOPENIA [None]
  - LUNG DISORDER [None]
  - MULTI-ORGAN FAILURE [None]
  - PNEUMONIA LEGIONELLA [None]
  - RENAL FAILURE ACUTE [None]
  - SEPTIC SHOCK [None]
  - TACHYPNOEA [None]
